FAERS Safety Report 14302439 (Version 2)
Quarter: 2018Q1

REPORT INFORMATION
  Report Type: Report from Study
  Country: ES (occurrence: ES)
  Receive Date: 20171219
  Receipt Date: 20180302
  Transmission Date: 20180509
  Serious: Yes (Hospitalization)
  Sender: FDA-Public Use
  Company Number: ES-ASPEN-GLO2017ES008409

PATIENT
  Age: 15 Year
  Sex: Female
  Weight: 54.2 kg

DRUGS (8)
  1. TIOGUANINA ASPEN [Suspect]
     Active Substance: THIOGUANINE ANHYDROUS
     Indication: ACUTE LYMPHOCYTIC LEUKAEMIA
     Dosage: 80 MG, QD
     Route: 048
     Dates: start: 20170706, end: 20170712
  2. CITARABINA [Concomitant]
     Active Substance: CYTARABINE
     Indication: ACUTE LYMPHOCYTIC LEUKAEMIA
     Dosage: 125 MG
     Route: 042
  3. CITARABINA [Concomitant]
     Active Substance: CYTARABINE
     Dosage: 125 MG, QD
     Route: 042
     Dates: start: 20170706, end: 20170709
  4. GABAPENTINA [Concomitant]
     Active Substance: GABAPENTIN
     Indication: MUCOSITIS MANAGEMENT
     Dosage: 600 MG, QD
     Route: 048
     Dates: start: 20170608, end: 20170626
  5. SEPTRIN [Concomitant]
     Active Substance: SULFAMETHOXAZOLE\TRIMETHOPRIM
     Indication: PROPHYLAXIS
     Dosage: 1 DF, QD
     Route: 048
     Dates: start: 20170105
  6. OMEPRAZOL [Concomitant]
     Active Substance: OMEPRAZOLE
     Indication: PROPHYLAXIS
     Dosage: 20 MG, QD
     Route: 048
     Dates: start: 20170519, end: 20170626
  7. ACICLOVIR [Concomitant]
     Active Substance: ACYCLOVIR
     Indication: PROPHYLAXIS
     Dosage: 2400 MG, QD
     Route: 048
     Dates: start: 20170105
  8. HIDROCORTISONA [Concomitant]
     Active Substance: HYDROCORTISONE
     Indication: ACUTE LYMPHOCYTIC LEUKAEMIA
     Dosage: 15 MG, QD
     Route: 048
     Dates: start: 20170610, end: 20170711

REACTIONS (1)
  - Pyrexia [Recovered/Resolved]

NARRATIVE: CASE EVENT DATE: 20170707
